FAERS Safety Report 10791783 (Version 1)
Quarter: 2015Q1

REPORT INFORMATION
  Report Type: Report from Study
  Country: US (occurrence: US)
  Receive Date: 20150213
  Receipt Date: 20150213
  Transmission Date: 20150721
  Serious: Yes (Other)
  Sender: FDA-Public Use
  Company Number: US-ROCHE-1535246

PATIENT

DRUGS (3)
  1. RITUXIMAB [Suspect]
     Active Substance: RITUXIMAB
     Indication: CHRONIC LYMPHOCYTIC LEUKAEMIA
     Route: 042
  2. ALEMTUZUMAB [Suspect]
     Active Substance: ALEMTUZUMAB
     Indication: CHRONIC LYMPHOCYTIC LEUKAEMIA
     Route: 065
  3. BETA 1,6 GLUCAN/BETA-1,3-GLUCAN [Suspect]
     Active Substance: INVESTIGATIONAL PRODUCT
     Indication: CHRONIC LYMPHOCYTIC LEUKAEMIA
     Route: 065

REACTIONS (8)
  - Hypertension [Unknown]
  - Gastritis [Unknown]
  - Febrile neutropenia [Unknown]
  - Transaminases increased [Unknown]
  - Neutropenia [Unknown]
  - Diarrhoea [Unknown]
  - Dehydration [Unknown]
  - Hyponatraemia [Unknown]
